FAERS Safety Report 17136165 (Version 1)
Quarter: 2019Q4

REPORT INFORMATION
  Report Type: Spontaneous
  Country: MY (occurrence: MY)
  Receive Date: 20191210
  Receipt Date: 20191210
  Transmission Date: 20200122
  Serious: Yes (Other)
  Sender: FDA-Public Use
  Company Number: MY-ASTRAZENECA-2019SF76593

PATIENT
  Age: 62 Year
  Sex: Female

DRUGS (1)
  1. ONGLYZA [Suspect]
     Active Substance: SAXAGLIPTIN HYDROCHLORIDE
     Indication: DIABETES MELLITUS
     Route: 048

REACTIONS (1)
  - Dermatitis exfoliative [Recovered/Resolved]
